FAERS Safety Report 9524761 (Version 1)
Quarter: 2013Q3

REPORT INFORMATION
  Report Type: Spontaneous
  Country: DE (occurrence: DE)
  Receive Date: 20130916
  Receipt Date: 20130916
  Transmission Date: 20140515
  Serious: Yes (Other)
  Sender: FDA-Public Use
  Company Number: PHHY2013DE101815

PATIENT
  Age: 46 Year
  Sex: Male

DRUGS (1)
  1. ACLASTA [Suspect]
     Dosage: 5 MG, YEARLY
     Route: 042

REACTIONS (3)
  - Cerebrovascular accident [Unknown]
  - Fracture [Unknown]
  - Accident [Unknown]
